FAERS Safety Report 8764922 (Version 1)
Quarter: 2012Q4

REPORT INFORMATION
  Report Type: 
  Country: GB (occurrence: GB)
  Receive Date: 20120902
  Receipt Date: 20120902
  Transmission Date: 20130627
  Serious: Yes (Other)
  Sender: FDA-Public Use
  Company Number: GB-MYLANLABS-2012S1017267

PATIENT
  Age: 32 Year
  Sex: Female

DRUGS (9)
  1. CITALOPRAM [Suspect]
     Indication: DEPRESSION
     Route: 048
     Dates: start: 20111004
  2. DIHYDROCODEINE [Suspect]
     Indication: PAIN
     Route: 048
     Dates: start: 20100315
  3. FLUOXETINE [Suspect]
     Indication: DEPRESSION
     Route: 048
     Dates: start: 20100621, end: 20111004
  4. OMEPRAZOLE [Suspect]
     Indication: DYSPEPSIA
     Route: 048
     Dates: start: 20090919
  5. CHLORPROMAZINE [Suspect]
     Indication: ANXIETY
     Route: 048
     Dates: start: 20110922
  6. PROPRANOLOL [Suspect]
     Indication: PALPITATIONS
     Route: 048
     Dates: start: 20090505
  7. PROPRANOLOL [Suspect]
     Indication: ANXIETY
     Route: 048
     Dates: start: 20090505
  8. SEROQUEL [Suspect]
     Indication: ANXIETY
     Route: 048
     Dates: start: 20110323, end: 20110910
  9. SEROQUEL [Suspect]
     Indication: DEPRESSION
     Route: 048
     Dates: start: 20110323, end: 20110910

REACTIONS (2)
  - Exposure during pregnancy [Unknown]
  - Pre-eclampsia [Unknown]
